FAERS Safety Report 7249594-1 (Version None)
Quarter: 2011Q1

REPORT INFORMATION
  Report Type: 
  Country: None (occurrence: None)
  Receive Date: 20110128
  Receipt Date: 20101215
  Transmission Date: 20110831
  Serious: Yes (Life-Threatening, Hospitalization, Other)
  Sender: FDA-Public Use
  Company Number: US-BAYER-201041844NA

PATIENT
  Age: 58 Year
  Sex: Female
  Weight: 68.182 kg

DRUGS (9)
  1. GLYBURIDE [Concomitant]
     Indication: DIABETES MELLITUS
     Dosage: 5 MG (DAILY DOSE), QD, ORAL
     Route: 048
     Dates: start: 20090101
  2. HYDROCHLOROTHIAZIDE [Concomitant]
     Indication: HYPERTENSION
     Dosage: 125 MG (DAILY DOSE), QD, ORAL
     Route: 048
     Dates: start: 20100101
  3. ALENDRONATE SODIUM [Concomitant]
     Indication: OSTEOPENIA
     Route: 048
     Dates: start: 20050101
  4. LIPITOR [Concomitant]
     Indication: BLOOD CHOLESTEROL INCREASED
     Dosage: 20 MG (DAILY DOSE), QD, ORAL
     Route: 048
  5. SORAFENIB (RAF KINASE INHIBITOR) [Suspect]
     Indication: RENAL CANCER
     Dosage: 400 MG, QD
     Route: 048
     Dates: start: 20100916, end: 20101110
  6. EVEROLIMUS [Suspect]
     Indication: RENAL CANCER
     Dosage: 35 MG, OW
     Route: 048
     Dates: start: 20100916, end: 20101110
  7. HYDROCODONE [Concomitant]
     Indication: FLANK PAIN
     Dosage: 7.5/500 MG Q 6 HRS
     Dates: start: 20100101
  8. LOVENOX [Concomitant]
  9. ANTI-DIABETICS [Concomitant]
     Indication: DIABETES MELLITUS
     Dosage: 5 MG (DAILY DOSE), QD, ORAL
     Route: 048
     Dates: start: 20100101

REACTIONS (15)
  - ATRIOVENTRICULAR BLOCK COMPLETE [None]
  - HAEMATOMA [None]
  - PNEUMONIA [None]
  - CARDIAC ARREST [None]
  - DIZZINESS [None]
  - RESPIRATORY FAILURE [None]
  - URINARY TRACT INFECTION [None]
  - NAUSEA [None]
  - ABDOMINAL PAIN [None]
  - MENTAL STATUS CHANGES [None]
  - SHOCK [None]
  - PERITONEAL HAEMORRHAGE [None]
  - DIARRHOEA [None]
  - SEPSIS [None]
  - HYPOPHOSPHATAEMIA [None]
